FAERS Safety Report 9060391 (Version 1)
Quarter: 2013Q1

REPORT INFORMATION
  Report Type: Spontaneous
  Country: US (occurrence: US)
  Receive Date: 20130212
  Receipt Date: 20130212
  Transmission Date: 20140127
  Serious: Yes (Other)
  Sender: FDA-Public Use
  Company Number: US-AMGEN-USASP2013008765

PATIENT
  Age: 41 Year
  Sex: Female

DRUGS (12)
  1. ENBREL [Suspect]
     Indication: RHEUMATOID ARTHRITIS
     Dosage: 50 MG, WEEKLY
     Route: 058
     Dates: start: 20120827
  2. HYDROCHLOROTHIAZIDE [Concomitant]
     Dosage: UNK
  3. LISINOPRIL [Concomitant]
     Dosage: UNK
  4. HYDROXYCHLOROQUINE [Concomitant]
     Dosage: UNK
  5. DICYCLOMINE                        /00068601/ [Concomitant]
     Dosage: UNK
  6. SERTRALINE HCL [Concomitant]
     Dosage: UNK
  7. NEXIUM                             /01479302/ [Concomitant]
     Dosage: UNK
  8. AVIANE [Concomitant]
     Dosage: UNK
  9. VITAMINE E [Concomitant]
     Dosage: UNK
  10. FISH OIL [Concomitant]
     Dosage: UNK
  11. GLUCOSAMINE [Concomitant]
     Dosage: UNK
  12. CALCIUM + IRON [Concomitant]
     Dosage: UNK

REACTIONS (3)
  - Skin papilloma [Recovered/Resolved]
  - Impaired healing [Unknown]
  - Localised infection [Not Recovered/Not Resolved]
